FAERS Safety Report 8611593-2 (Version None)
Quarter: 2012Q3

REPORT INFORMATION
  Report Type: 
  Country: None (occurrence: None)
  Receive Date: 20120822
  Receipt Date: 20120817
  Transmission Date: 20120928
  Serious: Yes (Other)
  Sender: FDA-Public Use
  Company Number: PHEH2012US011523

PATIENT
  Sex: Female

DRUGS (3)
  1. SEROQUEL [Concomitant]
     Dosage: 50 MG, QD
     Route: 048
  2. LAMICTAL [Concomitant]
     Dosage: 200 MG, QD
     Route: 048
  3. GILENYA [Suspect]
     Indication: MULTIPLE SCLEROSIS
     Dosage: 0.5 MG, QD
     Route: 048
     Dates: start: 20120308

REACTIONS (1)
  - BIPOLAR I DISORDER [None]
